FAERS Safety Report 5298445-3 (Version None)
Quarter: 2007Q2

REPORT INFORMATION
  Report Type: 
  Country: None (occurrence: None)
  Receive Date: 20070416
  Receipt Date: 20070402
  Transmission Date: 20071010
  Serious: Yes (Hospitalization)
  Sender: FDA-Public Use
  Company Number: TW-GENENTECH-239869

PATIENT
  Sex: Female
  Weight: 46.3 kg

DRUGS (4)
  1. AVASTIN [Suspect]
     Indication: COLON CANCER
     Dosage: 100 MG, UNK
     Dates: start: 20060726
  2. CAMPTOSAR [Concomitant]
     Indication: COLON CANCER
  3. FLUOROURACIL [Concomitant]
     Indication: COLON CANCER
  4. LEUCOVORIN CALCIUM [Concomitant]
     Indication: COLON CANCER

REACTIONS (3)
  - DECREASED APPETITE [None]
  - NAUSEA [None]
  - PYREXIA [None]
